FAERS Safety Report 25419405 (Version 1)
Quarter: 2025Q2

REPORT INFORMATION
  Report Type: Spontaneous
  Country: NL (occurrence: NL)
  Receive Date: 20250610
  Receipt Date: 20250610
  Transmission Date: 20250717
  Serious: Yes (Hospitalization, Other)
  Sender: NOVARTIS
  Company Number: NL-002147023-NVSC2025NL091328

PATIENT
  Sex: Female

DRUGS (1)
  1. CYCLOSPORINE [Suspect]
     Active Substance: CYCLOSPORINE
     Indication: Immunosuppression
     Route: 065

REACTIONS (6)
  - HELLP syndrome [Unknown]
  - Renal impairment [Unknown]
  - Foetal distress syndrome [Unknown]
  - Premature delivery [Unknown]
  - Drug level increased [Unknown]
  - Maternal exposure during pregnancy [Unknown]
